FAERS Safety Report 4735475-1 (Version None)
Quarter: 2005Q3

REPORT INFORMATION
  Report Type: 
  Country: None (occurrence: None)
  Receive Date: 20050805
  Receipt Date: 20050726
  Transmission Date: 20060218
  Serious: Yes (Hospitalization)
  Sender: FDA-Public Use
  Company Number: 2005AP04104

PATIENT
  Age: 4298 Day
  Sex: Female
  Weight: 56 kg

DRUGS (3)
  1. LIGNOCAINE [Suspect]
     Dosage: 1:10 DILUTION OF 1%
     Route: 058
     Dates: start: 20050223
  2. EMLA [Concomitant]
  3. STINGOSE [Concomitant]

REACTIONS (1)
  - WHEEZING [None]
